FAERS Safety Report 8925342 (Version 1)
Quarter: 2012Q4

REPORT INFORMATION
  Report Type: Report from Study
  Country: ES (occurrence: ES)
  Receive Date: 20121126
  Receipt Date: 20121126
  Transmission Date: 20130627
  Serious: Yes (Death, Hospitalization)
  Sender: FDA-Public Use
  Company Number: ES-MILLENNIUM PHARMACEUTICALS, INC.-2012-07785

PATIENT

DRUGS (4)
  1. VELCADE [Suspect]
     Indication: MULTIPLE MYELOMA
     Dosage: 0.7 mg, UNK
     Route: 042
     Dates: start: 20071127, end: 20100211
  2. THALIDOMIDE [Suspect]
     Indication: MULTIPLE MYELOMA
     Dosage: 50 mg, UNK
     Route: 048
     Dates: start: 20080715, end: 20090507
  3. PREDNISONE [Suspect]
     Indication: MULTIPLE MYELOMA
     Dosage: 100 mg, UNK
     Route: 048
     Dates: start: 20071127, end: 20080529
  4. MELPHALAN [Suspect]
     Indication: MULTIPLE MYELOMA
     Dosage: UNK
     Route: 065
     Dates: start: 20071127, end: 20080519

REACTIONS (5)
  - Cerebral infarction [Fatal]
  - Pneumonia [Fatal]
  - Disease progression [Fatal]
  - Sepsis [Recovered/Resolved]
  - Back pain [Recovered/Resolved]
